FAERS Safety Report 14031945 (Version 3)
Quarter: 2019Q4

REPORT INFORMATION
  Report Type: Spontaneous
  Country: FI (occurrence: FI)
  Receive Date: 20171002
  Receipt Date: 20191024
  Transmission Date: 20200122
  Serious: Yes (Hospitalization, Other)
  Sender: FDA-Public Use
  Company Number: FI-FERRINGPH-2017FE04614

PATIENT

DRUGS (9)
  1. LEPONEX [Suspect]
     Active Substance: CLOZAPINE
     Indication: PRODUCT USED FOR UNKNOWN INDICATION
     Dosage: 200 MG, DAILY
     Route: 065
     Dates: start: 2017, end: 2017
  2. LEPONEX [Suspect]
     Active Substance: CLOZAPINE
     Dosage: 50 MG, 1 TIME DAILY
     Route: 065
     Dates: start: 2017
  3. TEMESTA                            /00273201/ [Suspect]
     Active Substance: LORAZEPAM
     Indication: ANXIETY DISORDER
     Dosage: 1 MG, 1 TIME DAILY
  4. MINIRIN [Suspect]
     Active Substance: DESMOPRESSIN ACETATE
     Dosage: VARIED (USUALLY 2-3 DROPS DAILY)
     Route: 045
  5. LAMICTAL [Suspect]
     Active Substance: LAMOTRIGINE
     Indication: DYSKINESIA
     Dosage: 125 MG, 2 TIMES DAILY
     Route: 065
  6. MINIRIN [Suspect]
     Active Substance: DESMOPRESSIN ACETATE
     Indication: DIABETES INSIPIDUS
     Dosage: VARIED (3-4 DROPS DAILY)
     Route: 045
  7. LEPONEX [Suspect]
     Active Substance: CLOZAPINE
     Dosage: 100 MG, DAILY
     Route: 065
     Dates: start: 2017, end: 2017
  8. MINIRIN [Suspect]
     Active Substance: DESMOPRESSIN ACETATE
     Dosage: 2.5 ?G, 2 TIMES DAILY
     Route: 065
  9. VALPROATE [Suspect]
     Active Substance: VALPROIC ACID
     Indication: EPILEPSY
     Route: 065

REACTIONS (13)
  - Decreased appetite [Unknown]
  - Hyponatraemia [Unknown]
  - Somnolence [Unknown]
  - Disturbance in attention [Unknown]
  - Anxiety disorder [Unknown]
  - Epilepsy [Unknown]
  - Hypernatraemia [Unknown]
  - Memory impairment [Unknown]
  - Dyskinesia [Unknown]
  - Sluggishness [Unknown]
  - Thirst decreased [Unknown]
  - Micturition urgency [Unknown]
  - Fatigue [Unknown]

NARRATIVE: CASE EVENT DATE: 201709
